FAERS Safety Report 15131165 (Version 1)
Quarter: 2018Q3

REPORT INFORMATION
  Report Type: Report from Study
  Country: US (occurrence: US)
  Receive Date: 20180711
  Receipt Date: 20180711
  Transmission Date: 20181010
  Serious: Yes (Other)
  Sender: FDA-Public Use
  Company Number: US-PFIZER INC-2017343582

PATIENT
  Age: 68 Year
  Sex: Female

DRUGS (3)
  1. IBRANCE [Suspect]
     Active Substance: PALBOCICLIB
     Dosage: 100 MG, 1X/DAY
     Route: 048
     Dates: start: 20170818
  2. IBRANCE [Suspect]
     Active Substance: PALBOCICLIB
     Dosage: 100 MG, 1X/DAY
     Route: 048
     Dates: start: 20170816
  3. IBRANCE [Suspect]
     Active Substance: PALBOCICLIB
     Indication: BREAST CANCER
     Dosage: 125 MG, 1X/DAY
     Route: 048
     Dates: start: 20170712, end: 20170802

REACTIONS (17)
  - Dysphagia [Recovered/Resolved]
  - Fatigue [Not Recovered/Not Resolved]
  - Tumour marker increased [Unknown]
  - Pre-existing condition improved [Unknown]
  - Tooth infection [Unknown]
  - Neuropathy peripheral [Unknown]
  - Insomnia [Unknown]
  - Arthropod sting [Unknown]
  - Skin fissures [Unknown]
  - Back pain [Not Recovered/Not Resolved]
  - Therapeutic response unexpected [Unknown]
  - White blood cell count decreased [Recovering/Resolving]
  - Pollakiuria [Unknown]
  - Onychoclasis [Unknown]
  - Dizziness [Recovered/Resolved]
  - Infected naevus [Recovering/Resolving]
  - Mood altered [Unknown]

NARRATIVE: CASE EVENT DATE: 2017
